FAERS Safety Report 9697971 (Version 1)
Quarter: 2013Q4

REPORT INFORMATION
  Report Type: Spontaneous
  Country: US (occurrence: FR)
  Receive Date: 20131120
  Receipt Date: 20131120
  Transmission Date: 20140711
  Serious: Yes (Other)
  Sender: FDA-Public Use
  Company Number: US-PFIZER INC-2013326216

PATIENT
  Sex: 0

DRUGS (2)
  1. GABAPENTIN [Suspect]
     Indication: OBSESSIVE-COMPULSIVE DISORDER
     Dosage: MEAN DOSE = 3060MG/DAY
  2. FLUOXETINE [Concomitant]
     Indication: OBSESSIVE-COMPULSIVE DISORDER
     Dosage: MEAN DOSE = 70MG/DAY; RANGE, 50-80 MG/DAY

REACTIONS (7)
  - Off label use [Unknown]
  - Drug withdrawal syndrome [Recovered/Resolved]
  - Obsessive-compulsive disorder [Recovered/Resolved]
  - Obsessive thoughts [Recovered/Resolved]
  - Depression [Recovered/Resolved]
  - Insomnia [Recovered/Resolved]
  - Anxiety [Recovered/Resolved]
